FAERS Safety Report 9248999 (Version 1)
Quarter: 2013Q1

REPORT INFORMATION
  Report Type: Spontaneous
  Country: US (occurrence: None)
  Receive Date: 20130305
  Receipt Date: 20130305
  Transmission Date: 20140127
  Serious: Yes (Hospitalization)
  Sender: FDA-Public Use
  Company Number: 163-21880-12053224

PATIENT
  Age: 72 Year
  Sex: Male

DRUGS (2)
  1. REVLIMID (LENALIDOMIDE) [Suspect]
     Indication: MYELODYSPLASTIC SYNDROME
     Dates: start: 20120112, end: 20120520
  2. PRISTIQUE [Concomitant]

REACTIONS (3)
  - Full blood count decreased [None]
  - Pain in extremity [None]
  - Drug ineffective [None]
